FAERS Safety Report 4348297-0 (Version None)
Quarter: 2004Q1

REPORT INFORMATION
  Report Type: 
  Country: None (occurrence: None)
  Receive Date: 20040325
  Receipt Date: 20040211
  Transmission Date: 20041129
  Serious: No
  Sender: FDA-Public Use
  Company Number: USA031151570

PATIENT
  Age: 63 Year
  Sex: Female

DRUGS (4)
  1. FORTEO [Suspect]
     Indication: OSTEOPOROSIS
     Dates: start: 20030201
  2. EVISTA [Concomitant]
     Dates: start: 20030501
  3. SYNTHROID [Concomitant]
  4. CALCIUM CARBONATE [Concomitant]

REACTIONS (7)
  - ASTHENIA [None]
  - BLOOD THYROID STIMULATING HORMONE INCREASED [None]
  - FATIGUE [None]
  - HYPOAESTHESIA [None]
  - HYPOTHYROIDISM [None]
  - NERVE COMPRESSION [None]
  - OEDEMA PERIPHERAL [None]
